FAERS Safety Report 9696821 (Version 2)
Quarter: 2015Q4

REPORT INFORMATION
  Report Type: Report from Study
  Country: US (occurrence: US)
  Receive Date: 20131119
  Receipt Date: 20151029
  Transmission Date: 20160305
  Serious: Yes (Hospitalization, Disabling, Other)
  Sender: FDA-Public Use
  Company Number: US-ROCHE-1301915

PATIENT
  Age: 43 Year
  Sex: Female
  Weight: 70.6 kg

DRUGS (42)
  1. KYTRIL [Suspect]
     Active Substance: GRANISETRON HYDROCHLORIDE
     Indication: PRODUCT USED FOR UNKNOWN INDICATION
     Route: 040
     Dates: start: 20130129
  2. COUMADIN [Concomitant]
     Active Substance: WARFARIN SODIUM
     Indication: DEEP VEIN THROMBOSIS
     Dosage: DAILY, 2 TO 5 MG DEPENDS ON INR
     Route: 048
  3. DILANTIN [Concomitant]
     Active Substance: PHENYTOIN
     Dosage: 200 MG IN MORNING 168 IN EVENING
     Route: 048
  4. EFFEXOR [Concomitant]
     Active Substance: VENLAFAXINE HYDROCHLORIDE
     Dosage: EFFEXOR ER 225 MG IN AM AND 150 MG AT HS
     Route: 065
  5. ZOFRAN [Concomitant]
     Active Substance: ONDANSETRON HYDROCHLORIDE
  6. LOMOTIL (UNITED STATES) [Concomitant]
  7. RITUXAN [Suspect]
     Active Substance: RITUXIMAB
     Dosage: RECEIVED ON 10/SEP/2013, 19/NOV/2013
     Route: 042
  8. RITUXAN [Suspect]
     Active Substance: RITUXIMAB
     Dosage: RECEIVED ON 18/SEP/2012, 20/NOV/2012
     Route: 042
  9. PEPCID [Concomitant]
     Active Substance: FAMOTIDINE
     Route: 042
  10. FERROUS GLUCONATE [Concomitant]
     Active Substance: FERROUS GLUCONATE
     Dosage: BID
     Route: 065
  11. SOLU-CORTEF [Concomitant]
     Active Substance: HYDROCORTISONE SODIUM SUCCINATE
     Route: 042
  12. ACTIGALL [Concomitant]
     Active Substance: URSODIOL
  13. RITUXAN [Suspect]
     Active Substance: RITUXIMAB
     Dosage: RECEIVED ON 21/MAR/2014
     Route: 042
  14. PLAQUENIL [Concomitant]
     Active Substance: HYDROXYCHLOROQUINE SULFATE
     Route: 048
  15. DILANTIN [Concomitant]
     Active Substance: PHENYTOIN
     Dosage: 2 AM, 1 PM
     Route: 048
  16. ZANTAC [Concomitant]
     Active Substance: RANITIDINE HYDROCHLORIDE
     Route: 042
  17. METHADONE [Concomitant]
     Active Substance: METHADONE HYDROCHLORIDE
  18. COLACE [Concomitant]
     Active Substance: DOCUSATE SODIUM
  19. PYRIDIUM [Concomitant]
     Active Substance: PHENAZOPYRIDINE
  20. RITUXAN [Suspect]
     Active Substance: RITUXIMAB
     Dosage: RECEIVED ON 19/MAR/2012, 11/JAN/2013, 21/JAN/2013
     Route: 042
  21. PROPRANOLOL [Concomitant]
     Active Substance: PROPRANOLOL\PROPRANOLOL HYDROCHLORIDE
     Dosage: QD
     Route: 065
  22. CATAPRES-TTS [Concomitant]
     Active Substance: CLONIDINE
     Route: 065
  23. HYDROCORTISONE. [Concomitant]
     Active Substance: HYDROCORTISONE
     Route: 042
  24. VITAMIN B12 [Concomitant]
     Active Substance: CYANOCOBALAMIN
  25. RITUXAN [Suspect]
     Active Substance: RITUXIMAB
     Dosage: RECEIVED ON 16/JAN/2014
     Route: 042
  26. FENTANYL. [Concomitant]
     Active Substance: FENTANYL
     Route: 048
  27. VANCOMYCIN [Concomitant]
     Active Substance: VANCOMYCIN
     Route: 048
  28. IMODIUM [Concomitant]
     Active Substance: LOPERAMIDE HYDROCHLORIDE
  29. TYLENOL [Concomitant]
     Active Substance: ACETAMINOPHEN
     Route: 048
  30. FERAHEME [Concomitant]
     Active Substance: FERUMOXYTOL NON-STOICHIOMETRIC MAGNETITE
     Route: 040
  31. RITUXAN [Suspect]
     Active Substance: RITUXIMAB
     Indication: AUTOIMMUNE PANCREATITIS
     Route: 042
     Dates: start: 201101
  32. RITUXAN [Suspect]
     Active Substance: RITUXIMAB
     Route: 042
  33. BENADRYL [Concomitant]
     Active Substance: DIPHENHYDRAMINE HYDROCHLORIDE
     Route: 042
  34. DILANTIN [Concomitant]
     Active Substance: PHENYTOIN
     Route: 048
  35. ACTIQ [Concomitant]
     Active Substance: FENTANYL CITRATE
     Route: 065
  36. CREON [Concomitant]
     Active Substance: PANCRELIPASE AMYLASE\PANCRELIPASE LIPASE\PANCRELIPASE PROTEASE
     Dosage: 2 TABLETS WITH EACH MEAL
     Route: 065
  37. VENOFER (UNITED STATES) [Concomitant]
     Route: 040
  38. RITUXAN [Suspect]
     Active Substance: RITUXIMAB
     Indication: SYSTEMIC LUPUS ERYTHEMATOSUS
     Dosage: SUBSEQUENT DOSES ON 17/APR/2012, 12/JUN/2012, 03/MAY/2013, 14/MAY/2013
     Route: 042
  39. CLONAZEPAM. [Concomitant]
     Active Substance: CLONAZEPAM
     Dosage: 1 MG  IN AM AND 2 MG AT BED TIME
     Route: 065
  40. CHOLESTYRAMINE. [Concomitant]
     Active Substance: CHOLESTYRAMINE
  41. PHENERGAN [Concomitant]
     Active Substance: PROMETHAZINE HYDROCHLORIDE
     Indication: NAUSEA
     Route: 065
  42. AVELOX [Concomitant]
     Active Substance: MOXIFLOXACIN HYDROCHLORIDE

REACTIONS (63)
  - Urinary tract infection [Unknown]
  - Pruritus [Unknown]
  - Spinal pain [Unknown]
  - Urinary tract infection [Unknown]
  - Retching [Unknown]
  - Chills [Unknown]
  - Abdominal mass [Unknown]
  - Erythema nodosum [Unknown]
  - Paraesthesia [Unknown]
  - Urine output decreased [Unknown]
  - Headache [Unknown]
  - Bursitis [Unknown]
  - Colitis [Unknown]
  - Abdominal pain [Recovering/Resolving]
  - Nail discolouration [Unknown]
  - Decreased appetite [Unknown]
  - Aspartate aminotransferase increased [Unknown]
  - Product use issue [Unknown]
  - Flushing [Unknown]
  - Oesophageal stenosis [Unknown]
  - Neck mass [Unknown]
  - Ear pain [Unknown]
  - Oedema peripheral [Unknown]
  - Pruritus [Recovered/Resolved]
  - Feeling hot [Recovered/Resolved]
  - Peripheral swelling [Unknown]
  - Abdominal pain upper [Unknown]
  - Pancreatitis [Unknown]
  - Seizure [Unknown]
  - Gout [Unknown]
  - Orthostatic hypotension [Unknown]
  - Hyperhidrosis [Unknown]
  - Systemic lupus erythematosus [Unknown]
  - Mouth ulceration [Unknown]
  - Blood cholesterol increased [Unknown]
  - Drug level decreased [Unknown]
  - Oesophageal spasm [Unknown]
  - Vomiting [Unknown]
  - Pain [Unknown]
  - Abdominal pain [Not Recovered/Not Resolved]
  - Abdominal distension [Unknown]
  - Neurological symptom [Unknown]
  - Odynophagia [Unknown]
  - Bone pain [Unknown]
  - Abdominal pain [Unknown]
  - Arthralgia [Unknown]
  - Nausea [Recovering/Resolving]
  - Vaginal discharge [Unknown]
  - Skin papilloma [Unknown]
  - Night sweats [Unknown]
  - Diarrhoea [Unknown]
  - Joint swelling [Unknown]
  - Ecchymosis [Unknown]
  - Blood glucose decreased [Unknown]
  - Malaise [Unknown]
  - Hypophagia [Unknown]
  - Dehydration [Unknown]
  - Back pain [Unknown]
  - Blood parathyroid hormone increased [Unknown]
  - Inflammation [Unknown]
  - Pyrexia [Unknown]
  - Mucosal dryness [Unknown]
  - Nasopharyngitis [Unknown]

NARRATIVE: CASE EVENT DATE: 20130702
